FAERS Safety Report 8351606-9 (Version None)
Quarter: 2012Q2

REPORT INFORMATION
  Report Type: 
  Country: None (occurrence: None)
  Receive Date: 20120511
  Receipt Date: 20120501
  Transmission Date: 20120825
  Serious: No
  Sender: FDA-Public Use
  Company Number: US-BIOGENIDEC-2011BI039407

PATIENT
  Sex: Female

DRUGS (2)
  1. TYSABRI [Suspect]
     Indication: MULTIPLE SCLEROSIS
     Route: 042
     Dates: start: 20101119, end: 20110902
  2. AVONEX [Concomitant]
     Indication: MULTIPLE SCLEROSIS
     Route: 030

REACTIONS (11)
  - BALANCE DISORDER [None]
  - GASTRITIS BACTERIAL [None]
  - STRESS [None]
  - MALAISE [None]
  - PAIN IN EXTREMITY [None]
  - VIRAL INFECTION [None]
  - GASTROENTERITIS VIRAL [None]
  - ANXIETY [None]
  - WHITE BLOOD CELL COUNT INCREASED [None]
  - FATIGUE [None]
  - CHEST PAIN [None]
